FAERS Safety Report 6127376-1 (Version None)
Quarter: 2009Q1

REPORT INFORMATION
  Report Type: 
  Country: None (occurrence: None)
  Receive Date: 20090323
  Receipt Date: 20090311
  Transmission Date: 20090719
  Serious: Yes (Hospitalization)
  Sender: FDA-Public Use
  Company Number: FR-BAXTER-2009BH003993

PATIENT
  Age: 17 Year
  Sex: Male
  Weight: 72 kg

DRUGS (8)
  1. IFOSFAMIDE [Suspect]
     Indication: BONE SARCOMA
     Route: 065
  2. ETOPOSIDE [Suspect]
     Indication: BONE SARCOMA
     Route: 065
  3. VITAMIN D [Concomitant]
  4. CALCIDOSE [Concomitant]
  5. GRANISETRON [Concomitant]
  6. MOPRAL [Concomitant]
  7. LOVENOX [Concomitant]
  8. RIVOTRIL [Concomitant]

REACTIONS (4)
  - BLOOD CULTURE POSITIVE [None]
  - ESCHERICHIA INFECTION [None]
  - FEBRILE NEUTROPENIA [None]
  - GENERAL PHYSICAL HEALTH DETERIORATION [None]
